FAERS Safety Report 9479987 (Version 1)
Quarter: 2013Q3

REPORT INFORMATION
  Report Type: Spontaneous
  Country: US (occurrence: US)
  Receive Date: 20130828
  Receipt Date: 20130828
  Transmission Date: 20140515
  Serious: Yes (Hospitalization)
  Sender: FDA-Public Use
  Company Number: US-AMGEN-KDL050616

PATIENT
  Age: 37 Year
  Sex: Male

DRUGS (3)
  1. ENBREL [Suspect]
     Indication: PSORIATIC ARTHROPATHY
     Dosage: 25 MG, 2 TIMES/WK
     Route: 058
     Dates: start: 20030601
  2. SULFASALAZINE [Concomitant]
     Dosage: 500 MG, BID
  3. METHOTREXATE [Concomitant]
     Dosage: 20 MG, QWK

REACTIONS (1)
  - Nephrolithiasis [Unknown]
